FAERS Safety Report 14232044 (Version 1)
Quarter: 2017Q4

REPORT INFORMATION
  Report Type: Spontaneous
  Country: US (occurrence: US)
  Receive Date: 20171128
  Receipt Date: 20171128
  Transmission Date: 20180321
  Serious: Yes (Hospitalization, Other)
  Sender: FDA-Public Use
  Company Number: US-PFIZER INC-2017507023

PATIENT
  Age: 79 Year
  Sex: Female
  Weight: 65.77 kg

DRUGS (3)
  1. ONDANSETRON [Suspect]
     Active Substance: ONDANSETRON
     Indication: VOMITING
  2. ONDANSETRON [Suspect]
     Active Substance: ONDANSETRON
     Indication: NAUSEA
     Dosage: 8MG TABLET BY MOUTH EVERY 8 HOURS AS NEEDED
     Route: 048
     Dates: start: 20170407
  3. ATROPINE SULFATE/DIPHENOXYLATE HYDROCHLORIDE [Suspect]
     Active Substance: ATROPINE SULFATE\DIPHENOXYLATE HYDROCHLORIDE
     Indication: DIARRHOEA
     Dosage: TWO 2.5MG TABLETS BY MOUTH IMMEDIATELY AND THEN EVERY 4 HOURS AS NEEDED
     Route: 048
     Dates: start: 20170407, end: 20170408

REACTIONS (7)
  - Clostridium difficile infection [Recovered/Resolved]
  - Feeding disorder [Unknown]
  - Dialysis [None]
  - Renal failure [Unknown]
  - Urinary tract infection [Recovered/Resolved]
  - Hypertonic bladder [Not Recovered/Not Resolved]
  - Product use issue [Unknown]

NARRATIVE: CASE EVENT DATE: 201704
